FAERS Safety Report 9540699 (Version 1)
Quarter: 2013Q3

REPORT INFORMATION
  Report Type: Spontaneous
  Country: CA (occurrence: CA)
  Receive Date: 20130920
  Receipt Date: 20130920
  Transmission Date: 20140515
  Serious: Yes (Other)
  Sender: FDA-Public Use
  Company Number: CA-009507513-1309CAN009028

PATIENT
  Age: 77 Year
  Sex: Female

DRUGS (1)
  1. NITRO-DUR [Suspect]
     Indication: PRODUCT USED FOR UNKNOWN INDICATION
     Dosage: 0.4 MG, QD
     Route: 061

REACTIONS (1)
  - Application site rash [Recovered/Resolved]
